FAERS Safety Report 7128626-5 (Version None)
Quarter: 2010Q4

REPORT INFORMATION
  Report Type: 
  Country: None (occurrence: None)
  Receive Date: 20101130
  Receipt Date: 20101118
  Transmission Date: 20110411
  Serious: Yes (Other)
  Sender: FDA-Public Use
  Company Number: US-ROCHE-698350

PATIENT
  Sex: Female
  Weight: 49.9 kg

DRUGS (2)
  1. HERCEPTIN [Suspect]
     Indication: BREAST CANCER
     Dosage: ROUTE: PORT IV, FORM: INFUSION, LOADING DOSE.
     Route: 042
     Dates: start: 20100317
  2. PACLITAXEL [Suspect]
     Route: 065
     Dates: end: 20100602

REACTIONS (6)
  - ADVERSE DRUG REACTION [None]
  - ADVERSE EVENT [None]
  - ERYTHEMA [None]
  - LENTIGO [None]
  - ONYCHOMADESIS [None]
  - PHOTOSENSITIVITY REACTION [None]
